FAERS Safety Report 7947602-3 (Version None)
Quarter: 2011Q4

REPORT INFORMATION
  Report Type: 
  Country: None (occurrence: None)
  Receive Date: 20111130
  Receipt Date: 20111118
  Transmission Date: 20120403
  Serious: Yes (Other)
  Sender: FDA-Public Use
  Company Number: GB-AMGEN-GBRSP2011061925

PATIENT
  Age: 44 Year
  Sex: Male

DRUGS (10)
  1. PARACETAMOL [Concomitant]
     Dosage: UNK
  2. OMEPRAZOLE [Concomitant]
     Dosage: UNK
  3. METHOTREXATE [Concomitant]
     Dosage: UNK
  4. FUROSEMIDE [Concomitant]
     Dosage: UNK
  5. TRAMADOL HCL [Concomitant]
     Dosage: UNK
  6. BUTRANS                            /00444001/ [Concomitant]
     Dosage: UNK
  7. NAPROXEN [Concomitant]
     Dosage: UNK
  8. AMITRIPTYLINE HCL [Concomitant]
     Dosage: UNK
  9. ENBREL [Suspect]
     Indication: RHEUMATOID ARTHRITIS
     Dosage: 50 MG, WEEKLY
     Route: 058
     Dates: start: 20111111
  10. FOLIC ACID [Concomitant]
     Dosage: UNK

REACTIONS (3)
  - SWEAT GLAND DISORDER [None]
  - DISSOCIATION [None]
  - TREMOR [None]
